FAERS Safety Report 6517703-5 (Version None)
Quarter: 2009Q4

REPORT INFORMATION
  Report Type: 
  Country: None (occurrence: None)
  Receive Date: 20091224
  Receipt Date: 20091215
  Transmission Date: 20100525
  Serious: Yes (Other)
  Sender: FDA-Public Use
  Company Number: US-ASTRAZENECA-2009SE26974

PATIENT
  Age: 15082 Day
  Sex: Female
  Weight: 65.8 kg

DRUGS (2)
  1. PULMICORT FLEXHALER [Suspect]
     Indication: ASTHMA
     Route: 055
     Dates: start: 20091030, end: 20091115
  2. NASONEX [Concomitant]
     Indication: SEASONAL ALLERGY
     Dosage: 2 SPARY PER DAY
     Route: 055

REACTIONS (3)
  - DYSPNOEA [None]
  - LUNG DISORDER [None]
  - RESPIRATORY DISORDER [None]
